FAERS Safety Report 9984654 (Version 1)
Quarter: 2014Q1

REPORT INFORMATION
  Report Type: Spontaneous
  Country: US (occurrence: US)
  Receive Date: 20140307
  Receipt Date: 20140307
  Transmission Date: 20141002
  Serious: No
  Sender: FDA-Public Use
  Company Number: US-GLAXOSMITHKLINE-A1056396A

PATIENT
  Sex: Female

DRUGS (5)
  1. BREO ELLIPTA [Suspect]
     Indication: CHRONIC OBSTRUCTIVE PULMONARY DISEASE
     Dosage: 1PUFF PER DAY
     Route: 055
     Dates: start: 20131113
  2. SPIRIVA [Suspect]
     Dosage: 1PUFF TWICE PER DAY
     Route: 055
     Dates: start: 20140109
  3. TUDORZA [Suspect]
     Dosage: 1PUFF TWICE PER DAY
     Dates: start: 20131113, end: 20140109
  4. ALEVE [Concomitant]
  5. VENTOLIN HFA [Concomitant]

REACTIONS (2)
  - Oropharyngeal pain [Recovering/Resolving]
  - Inhalation therapy [Unknown]
